FAERS Safety Report 10759414 (Version 2)
Quarter: 2015Q1

REPORT INFORMATION
  Report Type: Spontaneous
  Country: US (occurrence: US)
  Receive Date: 20150203
  Receipt Date: 20150209
  Transmission Date: 20150721
  Serious: No
  Sender: FDA-Public Use
  Company Number: US-009507513-1502USA000812

PATIENT
  Age: 5 Year
  Sex: Female

DRUGS (7)
  1. CARBOPLATIN. [Suspect]
     Active Substance: CARBOPLATIN
     Indication: GLIONEURONAL TUMOUR
     Dosage: UNK
  2. TEMODAR [Suspect]
     Active Substance: TEMOZOLOMIDE
     Indication: GLIONEURONAL TUMOUR
     Dosage: UNK
     Route: 048
  3. BEVACIZUMAB [Suspect]
     Active Substance: BEVACIZUMAB
     Indication: GLIONEURONAL TUMOUR
     Dosage: UNK
  4. LOMUSTINE (+) PROCARBAZINE (+) THIOGUANINE (+) VINCRISTINE SULFATE [Suspect]
     Active Substance: LOMUSTINE\PROCARBAZINE\THIOGUANINE\VINCRISTINE SULFATE
     Indication: GLIONEURONAL TUMOUR
     Dosage: UNK
  5. VINORELBINE TARTRATE. [Suspect]
     Active Substance: VINORELBINE TARTRATE
     Indication: GLIONEURONAL TUMOUR
     Dosage: UNK
  6. VINCRISTINE SULFATE. [Suspect]
     Active Substance: VINCRISTINE SULFATE
     Indication: GLIONEURONAL TUMOUR
     Dosage: UNK
  7. IRINOTECAN HYDROCHLORIDE. [Suspect]
     Active Substance: IRINOTECAN HYDROCHLORIDE
     Indication: GLIONEURONAL TUMOUR
     Dosage: UNK

REACTIONS (1)
  - Drug ineffective [Unknown]
